FAERS Safety Report 7795762 (Version 2)
Quarter: 2012Q4

REPORT INFORMATION
  Report Type: Spontaneous
  Country: US (occurrence: None)
  Receive Date: 20110118
  Receipt Date: 20121015
  Transmission Date: 20130627
  Serious: Yes (Other)
  Sender: FDA-Public Use
  Company Number: 2011MA000150

PATIENT
  Sex: Male
  Weight: 95.71 kg

DRUGS (32)
  1. METOCLOPRAMIDE [Suspect]
     Indication: ACID REFLUX
     Dosage: PO
     Route: 048
     Dates: start: 200208, end: 200904
  2. ALPRAZOLAM [Concomitant]
  3. ASPIRINE [Concomitant]
  4. AVAPRO [Concomitant]
  5. BISOPROLOL/HCTZ [Concomitant]
  6. CELEXA [Concomitant]
  7. CHLORPHENIRAMINE MALEATE [Concomitant]
  8. CITALOPRAM [Concomitant]
  9. CLORAZEPATE [Concomitant]
  10. CODEINE [Concomitant]
  11. CYCLOBENZAPRINE [Concomitant]
  12. DARVOCET-N 100 [Concomitant]
  13. DOCUSATE [Concomitant]
  14. ENOXAPRIN [Concomitant]
  15. FLUNISOLIDE [Concomitant]
  16. GUAIFENESIN [Concomitant]
  17. LISINOPRIL/HCTZ [Concomitant]
  18. LORAZEPAM [Concomitant]
  19. METOPROLOL [Concomitant]
  20. PHYTONADIONE [Concomitant]
  21. PROPOXYPHENE [Concomitant]
  22. PROPULSID [Concomitant]
  23. PROTONIX [Concomitant]
  24. PSEUDO/TRIPROLIDINE [Concomitant]
  25. RABEPRAZOLE [Concomitant]
  26. RANITIDINE [Concomitant]
  27. SIMVASTATIN [Concomitant]
  28. TERAZOSIN [Concomitant]
  29. VIOXX [Concomitant]
  30. WARFARIN [Concomitant]
  31. ZIAC [Concomitant]
  32. ZOLOFT [Concomitant]

REACTIONS (5)
  - Tardive dyskinesia [None]
  - Extrapyramidal disorder [None]
  - Emotional disorder [None]
  - Economic problem [None]
  - Incorrect drug administration duration [None]
